FAERS Safety Report 5638007-9 (Version None)
Quarter: 2008Q1

REPORT INFORMATION
  Report Type: 
  Country: None (occurrence: None)
  Receive Date: 20080222
  Receipt Date: 20080222
  Transmission Date: 20080703
  Serious: Yes (Other)
  Sender: FDA-Public Use
  Company Number: None

PATIENT
  Age: 30 Year
  Sex: Female
  Weight: 61.2356 kg

DRUGS (1)
  1. LEVAQUIN [Suspect]
     Indication: SINUSITIS
     Dosage: 1 24 HOURS PO
     Route: 048
     Dates: start: 20080213, end: 20080218

REACTIONS (6)
  - ARTHRALGIA [None]
  - JOINT SWELLING [None]
  - MUSCLE FATIGUE [None]
  - MUSCULOSKELETAL PAIN [None]
  - MYALGIA [None]
  - SENSATION OF HEAVINESS [None]
